FAERS Safety Report 24670879 (Version 3)
Quarter: 2025Q3

REPORT INFORMATION
  Report Type: Spontaneous
  Country: JP (occurrence: JP)
  Receive Date: 20241127
  Receipt Date: 20250803
  Transmission Date: 20251020
  Serious: Yes (Other)
  Sender: ALEXION PHARMACEUTICALS
  Company Number: JP-ASTRAZENECA-240131751_061310_P_1

PATIENT
  Age: 82 Year
  Sex: Female

DRUGS (1)
  1. ROSUVASTATIN [Suspect]
     Active Substance: ROSUVASTATIN

REACTIONS (3)
  - Depressed level of consciousness [Unknown]
  - Cognitive disorder [Recovering/Resolving]
  - Hippocampal atrophy [Unknown]

NARRATIVE: CASE EVENT DATE: 20230101
